FAERS Safety Report 17270060 (Version 1)
Quarter: 2020Q1

REPORT INFORMATION
  Report Type: Spontaneous
  Country: US (occurrence: US)
  Receive Date: 20200114
  Receipt Date: 20200114
  Transmission Date: 20200409
  Serious: No
  Sender: FDA-Public Use
  Company Number: US-PARI RESPIRATORY EQUIPMENT, INC.-2019PAR00028

PATIENT
  Sex: Female

DRUGS (16)
  1. ACIDOPHILUS [Concomitant]
     Active Substance: LACTOBACILLUS ACIDOPHILUS
  2. COMPLETE FORM D3000 [Concomitant]
  3. VITAMIN D3 [Concomitant]
     Active Substance: CHOLECALCIFEROL
  4. POLYETH GLYCOL [Concomitant]
  5. OMEPRAZOLE. [Concomitant]
     Active Substance: OMEPRAZOLE
  6. PROAIR HFA [Concomitant]
     Active Substance: ALBUTEROL SULFATE
  7. SENNA-LAX [Concomitant]
     Active Substance: SENNOSIDES
  8. SODIUM CHLORIDE 7% [Concomitant]
     Active Substance: SODIUM CHLORIDE
  9. FLUTICASONE NASAL [Concomitant]
     Active Substance: FLUTICASONE
  10. ZENPEP [Concomitant]
     Active Substance: PANCRELIPASE AMYLASE\PANCRELIPASE LIPASE\PANCRELIPASE PROTEASE
  11. DICYCLOMINE [Concomitant]
     Active Substance: DICYCLOMINE HYDROCHLORIDE
  12. CETIRIZINE [Concomitant]
     Active Substance: CETIRIZINE HYDROCHLORIDE
  13. URSODIOL. [Concomitant]
     Active Substance: URSODIOL
  14. KITABIS PAK [Suspect]
     Active Substance: TOBRAMYCIN
     Indication: CYSTIC FIBROSIS
     Dosage: 300 MG, 2X/DAY
     Dates: start: 20161221
  15. PULMOZYME [Concomitant]
     Active Substance: DORNASE ALFA
  16. IPRATROPIUM NASAL [Concomitant]

REACTIONS (3)
  - Lip swelling [Unknown]
  - Granuloma [Unknown]
  - Systemic lupus erythematosus [Unknown]
